FAERS Safety Report 4944814-8 (Version None)
Quarter: 2006Q1

REPORT INFORMATION
  Report Type: 
  Country: None (occurrence: None)
  Receive Date: 20060315
  Receipt Date: 20050314
  Transmission Date: 20060701
  Serious: Yes (Hospitalization)
  Sender: FDA-Public Use
  Company Number: US-MERCK-0503USA02936

PATIENT
  Age: 53 Year
  Sex: Female
  Weight: 71 kg

DRUGS (12)
  1. VIOXX [Suspect]
     Indication: OSTEOARTHRITIS
     Route: 048
     Dates: start: 20010115, end: 20030301
  2. VIOXX [Suspect]
     Route: 048
     Dates: start: 20030701, end: 20040901
  3. DIOVAN [Concomitant]
     Route: 065
     Dates: start: 19980101
  4. TOPROL-XL [Concomitant]
     Indication: BLOOD PRESSURE
     Route: 065
     Dates: start: 19980101
  5. PLAVIX [Concomitant]
     Indication: STENT PLACEMENT
     Route: 065
     Dates: start: 19980101, end: 20050101
  6. ISOSORBIDE [Concomitant]
     Route: 065
  7. PAXIL [Concomitant]
     Route: 065
  8. NEXIUM [Concomitant]
     Route: 065
  9. ZOCOR [Concomitant]
     Route: 048
  10. ESTRATEST [Concomitant]
     Route: 065
  11. ZYRTEC [Concomitant]
     Route: 065
  12. VITAMINS (UNSPECIFIED) [Concomitant]
     Route: 065

REACTIONS (4)
  - BRONCHITIS [None]
  - CERVICOBRACHIAL SYNDROME [None]
  - DIZZINESS [None]
  - ISCHAEMIC STROKE [None]
